FAERS Safety Report 7340516-1 (Version None)
Quarter: 2011Q1

REPORT INFORMATION
  Report Type: 
  Country: None (occurrence: None)
  Receive Date: 20110309
  Receipt Date: 20110223
  Transmission Date: 20110831
  Serious: Yes (Other)
  Sender: FDA-Public Use
  Company Number: PHHY2011AU07204

PATIENT
  Sex: Female

DRUGS (4)
  1. ALDACTONE [Concomitant]
     Indication: HYPERTENSION
     Dosage: 25 MG, UNK
     Dates: start: 20090801
  2. TASIGNA [Suspect]
     Indication: CHRONIC MYELOID LEUKAEMIA
     Dosage: 400 MG, BID
     Route: 048
     Dates: start: 20100311, end: 20110105
  3. TASIGNA [Suspect]
     Dosage: 200 MG, BID
     Route: 048
     Dates: start: 20110105
  4. MICARDIS [Concomitant]
     Indication: HYPERTENSION
     Dates: start: 20090801

REACTIONS (4)
  - EYE PAIN [None]
  - AUTOIMMUNE DISORDER [None]
  - FATIGUE [None]
  - ARTHRALGIA [None]
